FAERS Safety Report 5105369-0 (Version None)
Quarter: 2006Q3

REPORT INFORMATION
  Report Type: 
  Country: None (occurrence: None)
  Receive Date: 20060915
  Receipt Date: 20060906
  Transmission Date: 20061208
  Serious: Yes (Other)
  Sender: FDA-Public Use
  Company Number: US-JNJFOC-20060703100

PATIENT
  Sex: Female
  Weight: 114.31 kg

DRUGS (8)
  1. REMICADE [Suspect]
     Indication: ANKYLOSING SPONDYLITIS
     Route: 042
  2. FOLIC ACID [Concomitant]
  3. CELEBREX [Concomitant]
  4. CLONAZEPAM [Concomitant]
  5. TRAMADOL HCL [Concomitant]
     Dosage: 6-8 PER DAY
  6. CITALOPRAM HYDROBROMIDE [Concomitant]
  7. PLAQUENIL [Concomitant]
  8. PROBUGOT [Concomitant]
     Dosage: 1.5/DAY

REACTIONS (1)
  - INTERVERTEBRAL DISC PROTRUSION [None]
